FAERS Safety Report 18142945 (Version 1)
Quarter: 2020Q3

REPORT INFORMATION
  Report Type: Report from Study
  Country: US (occurrence: US)
  Receive Date: 20200812
  Receipt Date: 20200812
  Transmission Date: 20201103
  Serious: Yes (Hospitalization)
  Sender: FDA-Public Use
  Company Number: US-CELGENEUS-USA-20200801444

PATIENT
  Age: 78 Year
  Sex: Male
  Weight: 65.83 kg

DRUGS (3)
  1. VIDAZA [Suspect]
     Active Substance: AZACITIDINE
     Indication: MYELODYSPLASTIC SYNDROME
  2. VIDAZA [Suspect]
     Active Substance: AZACITIDINE
     Indication: ACUTE MYELOID LEUKAEMIA
  3. VIDAZA [Suspect]
     Active Substance: AZACITIDINE
     Indication: PANCYTOPENIA
     Dosage: 135 MILLIGRAM
     Route: 058
     Dates: start: 20191209, end: 20200402

REACTIONS (2)
  - Anaemia [Recovered/Resolved]
  - Syncope [Recovered/Resolved]

NARRATIVE: CASE EVENT DATE: 20200306
